FAERS Safety Report 4462925-0 (Version None)
Quarter: 2004Q3

REPORT INFORMATION
  Report Type: 
  Country: None (occurrence: None)
  Receive Date: 20040927
  Receipt Date: 20040910
  Transmission Date: 20050211
  Serious: Yes (Life-Threatening, Hospitalization)
  Sender: FDA-Public Use
  Company Number: 2004-0007467

PATIENT
  Age: 61 Year
  Sex: Female

DRUGS (5)
  1. HEPSERA [Suspect]
     Indication: HEPATITIS B
     Dosage: 10 MG, 1 IN 1 D
     Dates: start: 20040312
  2. ZEFFIX (LAMIVUDINE) [Concomitant]
  3. SOPROL (BISOPROLOL FUMARATE) [Concomitant]
  4. LASIX [Concomitant]
  5. PRAVASTATIN [Concomitant]

REACTIONS (16)
  - ANGINA PECTORIS [None]
  - APHASIA [None]
  - ARRHYTHMIA [None]
  - ARTHRALGIA [None]
  - ATRIAL FIBRILLATION [None]
  - BACK PAIN [None]
  - BRADYCARDIA [None]
  - CHEST PAIN [None]
  - CYTOLYTIC HEPATITIS [None]
  - HEMIPARESIS [None]
  - MALAISE [None]
  - MOTOR DYSFUNCTION [None]
  - MYOCARDIAL ISCHAEMIA [None]
  - PALPITATIONS [None]
  - STRESS SYMPTOMS [None]
  - TROPONIN INCREASED [None]
